FAERS Safety Report 5809916-2 (Version None)
Quarter: 2008Q3

REPORT INFORMATION
  Report Type: 
  Country: None (occurrence: None)
  Receive Date: 20080714
  Receipt Date: 20080714
  Transmission Date: 20090109
  Serious: Yes (Life-Threatening, Hospitalization)
  Sender: FDA-Public Use
  Company Number: None

PATIENT
  Age: 59 Year
  Sex: Female
  Weight: 99.7913 kg

DRUGS (1)
  1. DIGOXIN [Suspect]
     Dosage: 1 TAB 1 X DAY PO
     Route: 048
     Dates: start: 20080201

REACTIONS (8)
  - ANOREXIA [None]
  - DIABETES MELLITUS [None]
  - DYSGEUSIA [None]
  - HEART RATE INCREASED [None]
  - MEDICATION ERROR [None]
  - MUSCLE SPASMS [None]
  - PANIC ATTACK [None]
  - WEIGHT DECREASED [None]
